FAERS Safety Report 19882541 (Version 1)
Quarter: 2021Q3

REPORT INFORMATION
  Report Type: Other
  Country: US (occurrence: US)
  Receive Date: 20210924
  Receipt Date: 20210924
  Transmission Date: 20211014
  Serious: Yes (Death, Other)
  Sender: FDA-Public Use
  Company Number: US-COVIS PHARMA GMBH-AMAG202004329

PATIENT
  Sex: Female

DRUGS (1)
  1. MAKENA [Suspect]
     Active Substance: HYDROXYPROGESTERONE CAPROATE
     Indication: FOETAL EXPOSURE DURING PREGNANCY
     Route: 064
     Dates: start: 20201005, end: 2020

REACTIONS (2)
  - Foetal growth restriction [Unknown]
  - Stillbirth [Fatal]

NARRATIVE: CASE EVENT DATE: 2020
